FAERS Safety Report 21270188 (Version 1)
Quarter: 2022Q3

REPORT INFORMATION
  Report Type: Spontaneous
  Country: US (occurrence: None)
  Receive Date: 20220829
  Receipt Date: 20220829
  Transmission Date: 20221027
  Serious: Yes (Hospitalization, Other)
  Sender: FDA-Public Use
  Company Number: None

PATIENT
  Age: 40 Year
  Sex: Female
  Weight: 83.25 kg

DRUGS (3)
  1. .DELTA.8-TETRAHYDROCANNABINOL\HERBALS [Suspect]
     Active Substance: .DELTA.8-TETRAHYDROCANNABINOL\HERBALS
     Indication: Accidental exposure to product
     Dosage: OTHER STRENGTH : PER GUMMY;?OTHER QUANTITY : 25 GUMMY;?
     Route: 048
     Dates: start: 20220726, end: 20220726
  2. LOSARTAN [Concomitant]
     Active Substance: LOSARTAN
  3. ZOLOFT [Concomitant]
     Active Substance: SERTRALINE HYDROCHLORIDE

REACTIONS (2)
  - Toxicity to various agents [None]
  - Malaise [None]

NARRATIVE: CASE EVENT DATE: 20220726
